FAERS Safety Report 18003890 (Version 2)
Quarter: 2021Q3

REPORT INFORMATION
  Report Type: Spontaneous
  Country: US (occurrence: US)
  Receive Date: 20200709
  Receipt Date: 20210709
  Transmission Date: 20211014
  Serious: No
  Sender: FDA-Public Use
  Company Number: US-ASTELLAS-2020US002335

PATIENT
  Age: 71 Year
  Sex: Female

DRUGS (1)
  1. MYRBETRIQ [Suspect]
     Active Substance: MIRABEGRON
     Indication: PRODUCT USED FOR UNKNOWN INDICATION
     Route: 065
     Dates: start: 201910, end: 20191102

REACTIONS (5)
  - Speech disorder [Unknown]
  - Illness [Unknown]
  - Confusional state [Unknown]
  - Swollen tongue [Unknown]
  - Dizziness [Unknown]

NARRATIVE: CASE EVENT DATE: 201910
